FAERS Safety Report 24748121 (Version 2)
Quarter: 2024Q4

REPORT INFORMATION
  Report Type: Spontaneous
  Country: IT (occurrence: IT)
  Receive Date: 20241218
  Receipt Date: 20241222
  Transmission Date: 20250114
  Serious: Yes (Hospitalization, Other)
  Sender: NOVARTIS
  Company Number: IT-002147023-NVSC2024IT237845

PATIENT
  Age: 75 Year
  Sex: Female

DRUGS (1)
  1. KISQALI [Suspect]
     Active Substance: RIBOCICLIB
     Indication: Product used for unknown indication
     Dosage: 200 MG
     Route: 065

REACTIONS (4)
  - Loss of consciousness [Not Recovered/Not Resolved]
  - Hepatic encephalopathy [Unknown]
  - Jaundice [Unknown]
  - Fatigue [Unknown]
